FAERS Safety Report 20949387 (Version 2)
Quarter: 2022Q3

REPORT INFORMATION
  Report Type: Report from Study
  Country: IL (occurrence: IL)
  Receive Date: 20220613
  Receipt Date: 20220812
  Transmission Date: 20221027
  Serious: Yes (Hospitalization, Other)
  Sender: FDA-Public Use
  Company Number: IL-ABBVIE-22K-082-4258638-00

PATIENT
  Sex: Male

DRUGS (6)
  1. CARBIDOPA\LEVODOPA [Suspect]
     Active Substance: CARBIDOPA\LEVODOPA
     Indication: Parkinson^s disease
     Route: 050
     Dates: start: 20211109
  2. CARBIDOPA\LEVODOPA [Suspect]
     Active Substance: CARBIDOPA\LEVODOPA
     Dosage: MORNING DOSAGE(ML)  8.0, CONTINUOUS DOSAGE (ML/H)  2.9, EXTRA DOSAGE (ML)  1.5
     Route: 050
     Dates: end: 202205
  3. EXELON PATCH [Concomitant]
     Active Substance: RIVASTIGMINE
     Indication: Product used for unknown indication
     Dates: end: 202202
  4. EXELON PATCH [Concomitant]
     Active Substance: RIVASTIGMINE
  5. MIRABEGRON [Concomitant]
     Active Substance: MIRABEGRON
     Indication: Product used for unknown indication
  6. SEROQUEL [Concomitant]
     Active Substance: QUETIAPINE FUMARATE
     Indication: Product used for unknown indication

REACTIONS (16)
  - Follicular lymphoma [Unknown]
  - Neoplasm malignant [Unknown]
  - Gastrointestinal disorder [Not Recovered/Not Resolved]
  - Weight decreased [Not Recovered/Not Resolved]
  - Abdominal pain [Recovered/Resolved]
  - Diarrhoea [Unknown]
  - Confusional state [Unknown]
  - Feeling abnormal [Recovering/Resolving]
  - Fatigue [Unknown]
  - On and off phenomenon [Unknown]
  - Mucous stools [Unknown]
  - Abdominal pain [Not Recovered/Not Resolved]
  - Abdominal lymphadenopathy [Unknown]
  - Lymphadenopathy [Unknown]
  - Flatulence [Unknown]
  - Asthenia [Not Recovered/Not Resolved]

NARRATIVE: CASE EVENT DATE: 20220101
